FAERS Safety Report 4996365-2 (Version None)
Quarter: 2006Q2

REPORT INFORMATION
  Report Type: 
  Country: None (occurrence: None)
  Receive Date: 20060509
  Receipt Date: 20060427
  Transmission Date: 20061013
  Serious: Yes (Life-Threatening, Disabling)
  Sender: FDA-Public Use
  Company Number: JP-JNJFOC-20060405050

PATIENT
  Sex: Male
  Weight: 52 kg

DRUGS (10)
  1. CRAVIT [Suspect]
     Indication: APPENDICITIS
     Route: 048
     Dates: start: 20060418, end: 20060418
  2. LOXONIN [Concomitant]
     Indication: APPENDICITIS
     Route: 048
     Dates: start: 20060418
  3. SELBEX [Concomitant]
     Indication: APPENDICITIS
     Route: 048
     Dates: start: 20060418
  4. ENTOMOL [Concomitant]
     Indication: APPENDICITIS
     Route: 048
     Dates: start: 20060418
  5. NEW KAITEKI A [Concomitant]
     Route: 065
  6. NEW KAITEKI A [Concomitant]
     Route: 065
  7. NEW KAITEKI A [Concomitant]
     Route: 065
  8. NEW KAITEKI A [Concomitant]
     Route: 065
  9. NEW KAITEKI A [Concomitant]
     Route: 065
  10. SOLITA T [Concomitant]
     Route: 042

REACTIONS (23)
  - ABNORMAL BEHAVIOUR [None]
  - AGGRESSION [None]
  - ALANINE AMINOTRANSFERASE INCREASED [None]
  - AMNESIA [None]
  - ASPARTATE AMINOTRANSFERASE INCREASED [None]
  - BLOOD CHLORIDE INCREASED [None]
  - BLOOD LACTATE DEHYDROGENASE INCREASED [None]
  - BODY TEMPERATURE DECREASED [None]
  - CONFUSIONAL STATE [None]
  - DEPRESSED LEVEL OF CONSCIOUSNESS [None]
  - HAEMATOCRIT DECREASED [None]
  - HAEMOGLOBIN DECREASED [None]
  - HEART RATE INCREASED [None]
  - INCOHERENT [None]
  - LOSS OF CONSCIOUSNESS [None]
  - LUNG INJURY [None]
  - PARALYSIS [None]
  - PLATELET COUNT INCREASED [None]
  - PNEUMOTHORAX TRAUMATIC [None]
  - PROTHROMBIN TIME PROLONGED [None]
  - RED BLOOD CELL COUNT DECREASED [None]
  - SELF INJURIOUS BEHAVIOUR [None]
  - WHITE BLOOD CELL COUNT INCREASED [None]
